FAERS Safety Report 9239653 (Version 1)
Quarter: 2013Q2

REPORT INFORMATION
  Report Type: Spontaneous
  Country: US (occurrence: US)
  Receive Date: 20130418
  Receipt Date: 20130418
  Transmission Date: 20140414
  Serious: No
  Sender: FDA-Public Use
  Company Number: US-B.I. PHARMACEUTICALS,INC./RIDGEFIELD-2013-BI-09546BP

PATIENT
  Age: 71 Year
  Sex: Male
  Weight: 91 kg

DRUGS (6)
  1. SPIRIVA [Suspect]
     Indication: CHRONIC OBSTRUCTIVE PULMONARY DISEASE
     Dosage: 18 MCG
     Route: 055
     Dates: start: 201302
  2. LOSARTAN HCT [Concomitant]
     Indication: HYPERTENSION
     Route: 048
  3. CARVEDILOL [Concomitant]
     Indication: HYPERTENSION
     Dosage: 12.5 MG
     Route: 048
  4. CRESTOR [Concomitant]
     Indication: BLOOD CHOLESTEROL INCREASED
     Dosage: 40 MG
     Route: 048
  5. NIASPAN [Concomitant]
     Indication: VASCULAR GRAFT
     Dosage: 50 MG
     Route: 048
  6. NITROQUICK [Concomitant]
     Indication: CHEST PAIN

REACTIONS (1)
  - Chest discomfort [Not Recovered/Not Resolved]
